FAERS Safety Report 19271270 (Version 5)
Quarter: 2022Q2

REPORT INFORMATION
  Report Type: Report from Study
  Country: FR (occurrence: FR)
  Receive Date: 20210518
  Receipt Date: 20220624
  Transmission Date: 20220721
  Serious: Yes (Hospitalization, Other)
  Sender: FDA-Public Use
  Company Number: FR-SHIRE-SPV1-2008-01735

PATIENT
  Age: 11 Year
  Sex: Male
  Weight: 24 kg

DRUGS (11)
  1. IDURSULFASE [Suspect]
     Active Substance: IDURSULFASE
     Indication: Mucopolysaccharidosis II
     Dosage: 12 MILLIGRAM, 1/WEEK
     Route: 041
     Dates: start: 20061212
  2. IDURSULFASE [Suspect]
     Active Substance: IDURSULFASE
     Dosage: 0.46 MILLIGRAM/KILOGRAM, 1X/WEEK
     Route: 042
     Dates: start: 20061212
  3. IDURSULFASE [Suspect]
     Active Substance: IDURSULFASE
     Dosage: 0.5 MILLIGRAM/KILOGRAM
     Route: 042
     Dates: start: 20070111
  4. IDURSULFASE [Suspect]
     Active Substance: IDURSULFASE
     Dosage: 0.46 MILLIGRAM/KILOGRAM, 1/WEEK
     Route: 042
     Dates: start: 20070913
  5. IDURSULFASE [Suspect]
     Active Substance: IDURSULFASE
     Dosage: 0.52 MILLIGRAM/KILOGRAM, 1/WEEK
     Route: 042
     Dates: start: 20100923
  6. IDURSULFASE [Suspect]
     Active Substance: IDURSULFASE
     Dosage: 0.5 MILLIGRAM/KILOGRAM, 1/WEEK
     Route: 042
     Dates: start: 20120319
  7. LAMICTAL [Concomitant]
     Active Substance: LAMOTRIGINE
     Indication: Nervous system disorder
     Dosage: 25 MILLIGRAM, QD
     Route: 065
     Dates: start: 200409
  8. LAMICTAL [Concomitant]
     Active Substance: LAMOTRIGINE
     Dosage: UNK
     Route: 048
     Dates: start: 20040901, end: 20090501
  9. LAMICTAL [Concomitant]
     Active Substance: LAMOTRIGINE
     Dosage: UNK
     Route: 048
     Dates: start: 20040901, end: 20100131
  10. RIVOTRIL [Concomitant]
     Active Substance: CLONAZEPAM
     Indication: Nervous system disorder
     Dosage: UNK
     Route: 048
     Dates: start: 20090701, end: 20100922
  11. BACLOFEN [Concomitant]
     Active Substance: BACLOFEN
     Indication: Nervous system disorder
     Dosage: UNK
     Route: 048
     Dates: start: 20100923, end: 20101007

REACTIONS (4)
  - Tonsillar hypertrophy [Recovered/Resolved]
  - Tooth development disorder [Recovered/Resolved]
  - Poor venous access [Recovered/Resolved]
  - Post procedural haemorrhage [Recovered/Resolved]

NARRATIVE: CASE EVENT DATE: 20070111
